FAERS Safety Report 16900059 (Version 3)
Quarter: 2022Q3

REPORT INFORMATION
  Report Type: Spontaneous
  Country: TR (occurrence: TR)
  Receive Date: 20191009
  Receipt Date: 20220909
  Transmission Date: 20221026
  Serious: Yes (Other)
  Sender: FDA-Public Use
  Company Number: TR-MLMSERVICE-20190923-1969827-1

PATIENT
  Age: 95 Month
  Sex: Female

DRUGS (1)
  1. CONCERTA [Suspect]
     Active Substance: METHYLPHENIDATE HYDROCHLORIDE
     Indication: Attention deficit hyperactivity disorder
     Dosage: MAXIMUM DOSE 60 MG
     Route: 065

REACTIONS (3)
  - Precocious puberty [Unknown]
  - Off label use [Unknown]
  - Inappropriate schedule of product administration [Unknown]
